FAERS Safety Report 6245388-4 (Version None)
Quarter: 2009Q2

REPORT INFORMATION
  Report Type: 
  Country: None (occurrence: None)
  Receive Date: 20090625
  Receipt Date: 20090520
  Transmission Date: 20091009
  Serious: No
  Sender: FDA-Public Use
  Company Number: US-ASTRAZENECA-2009UW13073

PATIENT
  Sex: Male

DRUGS (1)
  1. NEXIUM [Suspect]
     Dosage: 10 MG
     Route: 050

REACTIONS (1)
  - APPLICATION SITE DISCHARGE [None]
